FAERS Safety Report 10402538 (Version 2)
Quarter: 2014Q3

REPORT INFORMATION
  Report Type: Spontaneous
  Country: US (occurrence: US)
  Receive Date: 20140822
  Receipt Date: 20140923
  Transmission Date: 20150326
  Serious: Yes (Other)
  Sender: FDA-Public Use
  Company Number: US-PFIZER INC-2014231676

PATIENT
  Age: 20 Year
  Sex: Male
  Weight: 90.7 kg

DRUGS (1)
  1. DILANTIN [Suspect]
     Active Substance: PHENYTOIN
     Indication: CONVULSION
     Dosage: UNK
     Dates: start: 2006, end: 2009

REACTIONS (1)
  - Suicidal ideation [Unknown]
